FAERS Safety Report 4346345-5 (Version None)
Quarter: 2004Q1

REPORT INFORMATION
  Report Type: 
  Country: None (occurrence: None)
  Receive Date: 20040325
  Receipt Date: 20040202
  Transmission Date: 20041129
  Serious: No
  Sender: FDA-Public Use
  Company Number: USA040258250

PATIENT
  Age: 68 Year
  Sex: Female

DRUGS (3)
  1. FORTEO [Suspect]
     Dates: start: 20040102
  2. THYROID TAB [Concomitant]
  3. PROTONIX [Concomitant]

REACTIONS (2)
  - DEPRESSION [None]
  - NERVOUSNESS [None]
